FAERS Safety Report 21298616 (Version 1)
Quarter: 2022Q3

REPORT INFORMATION
  Report Type: Spontaneous
  Country: US (occurrence: None)
  Receive Date: 20220904
  Receipt Date: 20220904
  Transmission Date: 20221027
  Serious: Yes (Other)
  Sender: FDA-Public Use
  Company Number: None

PATIENT
  Age: 13 Year
  Sex: Female
  Weight: 51.3 kg

DRUGS (2)
  1. MYORISAN [Suspect]
     Active Substance: ISOTRETINOIN
     Indication: Acne cystic
     Dosage: OTHER QUANTITY : 1 CAPSULE(S);?
     Route: 048
     Dates: start: 20220523, end: 20220802
  2. ALBUTEROL [Concomitant]
     Active Substance: ALBUTEROL

REACTIONS (6)
  - Mental disorder [None]
  - Major depression [None]
  - Psychotic disorder [None]
  - Flat affect [None]
  - Thinking abnormal [None]
  - Abnormal behaviour [None]

NARRATIVE: CASE EVENT DATE: 20220802
